FAERS Safety Report 22289532 (Version 1)
Quarter: 2023Q2

REPORT INFORMATION
  Report Type: Spontaneous
  Country: AU (occurrence: AU)
  Receive Date: 20230505
  Receipt Date: 20230505
  Transmission Date: 20230721
  Serious: Yes (Other)
  Sender: FDA-Public Use
  Company Number: AU-EXELTIS PHARMACEUTICAL HOLDING, S.L.-2304AU02589

PATIENT
  Age: 32 Year
  Sex: Female

DRUGS (1)
  1. DROSPIRENONE [Suspect]
     Active Substance: DROSPIRENONE
     Indication: Product used for unknown indication

REACTIONS (7)
  - Abnormal loss of weight [Unknown]
  - Concomitant disease aggravated [Unknown]
  - Insomnia [Unknown]
  - Mood swings [Unknown]
  - Night sweats [Unknown]
  - Depression [Unknown]
  - Anxiety [Unknown]
